FAERS Safety Report 8617386-4 (Version None)
Quarter: 2012Q3

REPORT INFORMATION
  Report Type: 
  Country: None (occurrence: None)
  Receive Date: 20120823
  Receipt Date: 20120807
  Transmission Date: 20120928
  Serious: Yes (Other)
  Sender: FDA-Public Use
  Company Number: JP-009507513-2012SP028035

PATIENT

DRUGS (11)
  1. LEVOCARNITINE HYDROCHLORIDE [Concomitant]
     Indication: PRODUCT USED FOR UNKNOWN INDICATION
     Dosage: TRADE NAME (L-CARTIN), FORMULATION: POR, CUMULATIVE DOSE: 1800 (MG)
     Route: 048
     Dates: start: 20120319, end: 20120416
  2. RABEPRAZOLE SODIUM [Concomitant]
     Indication: PRODUCT USED FOR UNKNOWN INDICATION
     Dosage: FORMULATION: POR, CUMULATIVE DOSE: 20 MILLIGRAMS
     Route: 048
     Dates: start: 20120319, end: 20120416
  3. TELAVIC [Suspect]
     Indication: HEPATITIS C
     Route: 048
     Dates: start: 20120319, end: 20120329
  4. ANTIVIRAL (UNSPECIFIED) [Suspect]
     Indication: HEPATITIS C
     Dosage: 2250 MG, QD
     Route: 048
     Dates: start: 20120319, end: 20120329
  5. REBETOL [Suspect]
     Indication: HEPATITIS C
     Dosage: 600 MG, QD
     Route: 048
     Dates: start: 20120319, end: 20120416
  6. PEG-INTRON [Suspect]
     Indication: HEPATITIS C
     Dosage: 1.5MCG/KG/WEEK
     Route: 058
     Dates: start: 20120319, end: 20120416
  7. PRIMPERAN TAB [Concomitant]
     Indication: PRODUCT USED FOR UNKNOWN INDICATION
     Dosage: THREE TABLETS PER DAY
     Route: 065
     Dates: start: 20120320, end: 20120416
  8. TELAVIC [Suspect]
     Route: 048
     Dates: start: 20120330, end: 20120416
  9. ANTIVIRAL (UNSPECIFIED) [Suspect]
     Dosage: 1500 MG, QD
     Route: 048
     Dates: start: 20120330, end: 20120416
  10. L CARTIN [Concomitant]
     Indication: PROPHYLAXIS
     Route: 048
     Dates: start: 20120319, end: 20120416
  11. REBAMIPIDE [Concomitant]
     Indication: PRODUCT USED FOR UNKNOWN INDICATION
     Dosage: FORMULATION: POR, CUMULATIVE DOSE: 600 MILLIGRAMS, TRADE NAME: UNKNOWN
     Route: 048
     Dates: start: 20120319, end: 20120416

REACTIONS (2)
  - NAUSEA [None]
  - DECREASED APPETITE [None]
